FAERS Safety Report 8246757-3 (Version None)
Quarter: 2012Q1

REPORT INFORMATION
  Report Type: 
  Country: None (occurrence: None)
  Receive Date: 20120330
  Receipt Date: 20120322
  Transmission Date: 20120608
  Serious: Yes (Other)
  Sender: FDA-Public Use
  Company Number: US-PFIZER INC-2012067147

PATIENT
  Sex: Female

DRUGS (1)
  1. EPIPEN [Suspect]
     Indication: HYPERSENSITIVITY
     Dosage: 0.3 MG, UNK

REACTIONS (4)
  - ACCIDENTAL EXPOSURE [None]
  - PERIPHERAL COLDNESS [None]
  - HYPOAESTHESIA [None]
  - SKIN DISCOLOURATION [None]
